FAERS Safety Report 7880894-8 (Version None)
Quarter: 2011Q4

REPORT INFORMATION
  Report Type: 
  Country: None (occurrence: None)
  Receive Date: 20111101
  Receipt Date: 20111021
  Transmission Date: 20120403
  Serious: Yes (Other)
  Sender: FDA-Public Use
  Company Number: PT-BAXTER-2011BH032935

PATIENT
  Age: 39 Year
  Sex: Female

DRUGS (8)
  1. SUXAMETHONIUM [Suspect]
     Indication: PRODUCT USED FOR UNKNOWN INDICATION
     Route: 042
     Dates: start: 20110930, end: 20110930
  2. ATRACURIUM BESYLATE [Suspect]
     Indication: PRODUCT USED FOR UNKNOWN INDICATION
     Route: 042
     Dates: start: 20110930, end: 20110930
  3. FENTANYL-100 [Suspect]
     Indication: PRODUCT USED FOR UNKNOWN INDICATION
     Route: 042
     Dates: start: 20110930, end: 20110930
  4. PROPOFOL [Suspect]
     Indication: PRODUCT USED FOR UNKNOWN INDICATION
     Route: 042
     Dates: start: 20110930, end: 20110930
  5. SEVOFLURANE [Suspect]
     Indication: INDUCTION AND MAINTENANCE OF ANAESTHESIA
     Route: 055
     Dates: start: 20110930, end: 20110930
  6. SEVOFLURANE [Suspect]
     Route: 055
     Dates: start: 20110930, end: 20110930
  7. SEVOFLURANE [Suspect]
     Route: 055
     Dates: start: 20110930, end: 20110930
  8. DROPERIDOL [Suspect]
     Indication: PRODUCT USED FOR UNKNOWN INDICATION
     Route: 042
     Dates: start: 20110930, end: 20110930

REACTIONS (2)
  - DRUG INEFFECTIVE [None]
  - UNWANTED AWARENESS DURING ANAESTHESIA [None]
